FAERS Safety Report 21996880 (Version 1)
Quarter: 2023Q1

REPORT INFORMATION
  Report Type: Spontaneous
  Country: US (occurrence: US)
  Receive Date: 20230215
  Receipt Date: 20230215
  Transmission Date: 20230417
  Serious: No
  Sender: FDA-Public Use
  Company Number: US-GILEAD-2023-0615974

PATIENT
  Age: 32 Year
  Sex: Female

DRUGS (9)
  1. TENOFOVIR DISOPROXIL FUMARATE [Suspect]
     Active Substance: TENOFOVIR DISOPROXIL FUMARATE
     Indication: HIV infection
     Route: 065
  2. EMTRICITABINE [Suspect]
     Active Substance: EMTRICITABINE
     Indication: HIV infection
     Route: 065
  3. BICTEGRAVIR [Suspect]
     Active Substance: BICTEGRAVIR
     Indication: HIV infection
     Route: 065
  4. ALBUTEROL SULFATE [Concomitant]
     Active Substance: ALBUTEROL SULFATE
  5. PENTAMIDINE [Concomitant]
     Active Substance: PENTAMIDINE
  6. SYMTUZA [Concomitant]
     Active Substance: COBICISTAT\DARUNAVIR\EMTRICITABINE\TENOFOVIR ALAFENAMIDE
  7. DORAVIRINE [Concomitant]
     Active Substance: DORAVIRINE
  8. FOSTEMSAVIR [Concomitant]
     Active Substance: FOSTEMSAVIR
  9. IBALIZUMAB [Concomitant]
     Active Substance: IBALIZUMAB

REACTIONS (1)
  - Drug resistance [Not Recovered/Not Resolved]
